FAERS Safety Report 7525140-X (Version None)
Quarter: 2011Q2

REPORT INFORMATION
  Report Type: 
  Country: None (occurrence: None)
  Receive Date: 20110602
  Receipt Date: 20110602
  Transmission Date: 20111010
  Serious: No
  Sender: FDA-Public Use
  Company Number: None

PATIENT
  Age: 68 Year
  Sex: Male
  Weight: 83 kg

DRUGS (2)
  1. SIMVASTATIN [Suspect]
     Indication: HYPERLIPIDAEMIA
     Dosage: 80 MG PM PO
     Route: 048
     Dates: start: 20110305, end: 20110322
  2. AMIODARONE HCL [Suspect]
     Indication: ATRIAL FIBRILLATION
     Dosage: 30 MG PER HOUR IV
     Route: 042
     Dates: start: 20110317, end: 20110318

REACTIONS (3)
  - RENAL IMPAIRMENT [None]
  - CONTINUOUS HAEMODIAFILTRATION [None]
  - RHABDOMYOLYSIS [None]
